FAERS Safety Report 8481757-X (Version None)
Quarter: 2012Q3

REPORT INFORMATION
  Report Type: 
  Country: None (occurrence: None)
  Receive Date: 20120702
  Receipt Date: 20120628
  Transmission Date: 20120928
  Serious: Yes (Other)
  Sender: FDA-Public Use
  Company Number: US-ROCHE-1061726

PATIENT
  Sex: Female
  Weight: 64.468 kg

DRUGS (1)
  1. ACCUTANE [Suspect]
     Indication: ROSACEA
     Route: 065
     Dates: start: 19990101, end: 20020101

REACTIONS (3)
  - DEPRESSION [None]
  - INJURY [None]
  - COLITIS MICROSCOPIC [None]
